FAERS Safety Report 4526198-2 (Version None)
Quarter: 2004Q4

REPORT INFORMATION
  Report Type: 
  Country: None (occurrence: None)
  Receive Date: 20041210
  Receipt Date: 19970624
  Transmission Date: 20050328
  Serious: Yes (Hospitalization)
  Sender: FDA-Public Use
  Company Number: S97-US-00371-01

PATIENT
  Age: 36 Year
  Sex: Female
  Weight: 64.8644 kg

DRUGS (4)
  1. MONUROL [Suspect]
     Indication: CYSTITIS
     Dosage: 3 G ONCE PO
     Route: 048
     Dates: start: 19970617, end: 19970617
  2. MACROBID [Concomitant]
  3. NORDETTE-21 [Concomitant]
  4. ALESSE [Concomitant]

REACTIONS (20)
  - ACTIVATED PARTIAL THROMBOPLASTIN TIME PROLONGED [None]
  - ANOREXIA [None]
  - BACK PAIN [None]
  - BACTERIA URINE [None]
  - BLOOD CALCIUM DECREASED [None]
  - BLOOD MAGNESIUM DECREASED [None]
  - BLOOD POTASSIUM DECREASED [None]
  - BLOOD URINE PRESENT [None]
  - CONDITION AGGRAVATED [None]
  - COSTOVERTEBRAL ANGLE TENDERNESS [None]
  - DEHYDRATION [None]
  - NAUSEA [None]
  - PANCYTOPENIA [None]
  - PYELONEPHRITIS ACUTE [None]
  - PYREXIA [None]
  - SELF-MEDICATION [None]
  - SUPRAPUBIC PAIN [None]
  - URINARY SEDIMENT PRESENT [None]
  - URINE ABNORMALITY [None]
  - UROBILIN URINE PRESENT [None]
